FAERS Safety Report 17895511 (Version 2)
Quarter: 2020Q2

REPORT INFORMATION
  Report Type: Spontaneous
  Country: SE (occurrence: SE)
  Receive Date: 20200615
  Receipt Date: 20200622
  Transmission Date: 20200714
  Serious: Yes (Hospitalization)
  Sender: FDA-Public Use
  Company Number: SE-JNJFOC-20200243374

PATIENT
  Age: 41 Year
  Sex: Female

DRUGS (2)
  1. STELARA [Suspect]
     Active Substance: USTEKINUMAB
     Indication: CROHN^S DISEASE
     Dosage: 90 MG EVERY 8TH WEEK, STARTED WITH THE INFUSION 09/OCT/2019
     Route: 042
     Dates: start: 20191009
  2. PREDNISOLONE. [Concomitant]
     Active Substance: PREDNISOLONE
     Route: 065

REACTIONS (3)
  - Herpes zoster [Unknown]
  - Cellulitis orbital [Unknown]
  - Soft tissue infection [Unknown]

NARRATIVE: CASE EVENT DATE: 2020
